FAERS Safety Report 17611642 (Version 1)
Quarter: 2020Q2

REPORT INFORMATION
  Report Type: Spontaneous
  Country: US (occurrence: US)
  Receive Date: 20200401
  Receipt Date: 20200401
  Transmission Date: 20200713
  Serious: Yes (Other)
  Sender: FDA-Public Use
  Company Number: US-THE MENTHOLATUM COMPANY-2082215

PATIENT
  Sex: Male

DRUGS (1)
  1. OXY 10 ACNE CLEANSER [Suspect]
     Active Substance: BENZOYL PEROXIDE
     Indication: ACNE
     Route: 061
     Dates: end: 20200318

REACTIONS (4)
  - Ocular hyperaemia [Recovering/Resolving]
  - Hypersensitivity [Recovering/Resolving]
  - Swelling of eyelid [Recovering/Resolving]
  - Eye irritation [Recovering/Resolving]

NARRATIVE: CASE EVENT DATE: 20200318
